FAERS Safety Report 12679237 (Version 1)
Quarter: 2016Q3

REPORT INFORMATION
  Report Type: Spontaneous
  Country: US (occurrence: None)
  Receive Date: 20160823
  Receipt Date: 20160823
  Transmission Date: 20161109
  Serious: No
  Sender: FDA-Public Use
  Company Number: None

PATIENT
  Age: 57 Year
  Sex: Female

DRUGS (2)
  1. LETAIRIS [Concomitant]
     Active Substance: AMBRISENTAN
  2. ADCIRCA [Suspect]
     Active Substance: TADALAFIL
     Indication: PULMONARY HYPERTENSION
     Route: 048
     Dates: start: 20160819

REACTIONS (6)
  - Myalgia [None]
  - Vision blurred [None]
  - Flushing [None]
  - Feeling cold [None]
  - Headache [None]
  - Nasal congestion [None]

NARRATIVE: CASE EVENT DATE: 20160819
